FAERS Safety Report 19919652 (Version 1)
Quarter: 2021Q4

REPORT INFORMATION
  Report Type: Spontaneous
  Country: US (occurrence: US)
  Receive Date: 20211005
  Receipt Date: 20211005
  Transmission Date: 20220304
  Serious: Yes (Death, Life-Threatening, Hospitalization, Other)
  Sender: FDA-Public Use
  Company Number: US-MLMSERVICE-20210921-3117699-1

PATIENT
  Age: 45 Year
  Sex: Male

DRUGS (2)
  1. CLOZAPINE [Suspect]
     Active Substance: CLOZAPINE
     Indication: Psychotic disorder
  2. HALOPERIDOL [Suspect]
     Active Substance: HALOPERIDOL
     Indication: Schizophrenia
     Route: 048

REACTIONS (5)
  - Neuroleptic malignant syndrome [Fatal]
  - Renal tubular injury [Fatal]
  - Rhabdomyolysis [Fatal]
  - Pericarditis [Fatal]
  - Extrapyramidal disorder [Unknown]
